FAERS Safety Report 8434692-7 (Version None)
Quarter: 2012Q2

REPORT INFORMATION
  Report Type: 
  Country: None (occurrence: None)
  Receive Date: 20120323
  Receipt Date: 20110818
  Transmission Date: 20120825
  Serious: Yes (Hospitalization)
  Sender: FDA-Public Use
  Company Number: 163-21880-11070260

PATIENT
  Age: 81 Year
  Sex: Male

DRUGS (7)
  1. OMEPRAZOLE [Concomitant]
  2. FUROSEMIDE [Concomitant]
  3. FERROUS SULFATE TAB [Concomitant]
  4. LENALIDOMIDE [Suspect]
     Indication: MULTIPLE MYELOMA
     Dosage: 25 MG, DAILY, PO
     Route: 048
     Dates: start: 20110628, end: 20110701
  5. COUMADIN [Concomitant]
  6. AMIODARONE HCL [Concomitant]
  7. JANTOVEN [Concomitant]

REACTIONS (1)
  - DIVERTICULITIS [None]
